FAERS Safety Report 17394625 (Version 1)
Quarter: 2020Q1

REPORT INFORMATION
  Report Type: Spontaneous
  Country: US (occurrence: US)
  Receive Date: 20200210
  Receipt Date: 20200210
  Transmission Date: 20200409
  Serious: No
  Sender: FDA-Public Use
  Company Number: US-GLAXOSMITHKLINE-US2020019564

PATIENT
  Age: 72 Year
  Sex: Male

DRUGS (2)
  1. ABREVA [Suspect]
     Active Substance: DOCOSANOL
     Indication: ORAL HERPES
     Dosage: 2 APPLICATIONS
     Dates: start: 20200202, end: 20200202
  2. ABREVA [Suspect]
     Active Substance: DOCOSANOL
     Indication: ACNE

REACTIONS (5)
  - Concomitant disease aggravated [Unknown]
  - Product use in unapproved indication [Unknown]
  - Inappropriate schedule of product administration [Unknown]
  - Lip swelling [Unknown]
  - Application site discomfort [Unknown]

NARRATIVE: CASE EVENT DATE: 20200202
